FAERS Safety Report 5190507-4 (Version None)
Quarter: 2006Q4

REPORT INFORMATION
  Report Type: 
  Country: None (occurrence: None)
  Receive Date: 20061222
  Receipt Date: 20061215
  Transmission Date: 20070319
  Serious: Yes (Hospitalization)
  Sender: FDA-Public Use
  Company Number: FR-GLAXOSMITHKLINE-B0450839A

PATIENT
  Age: 27 Year
  Sex: Male
  Weight: 70 kg

DRUGS (5)
  1. TELZIR [Suspect]
     Indication: HIV INFECTION
     Dosage: 1400MG PER DAY
     Route: 048
     Dates: start: 20060822
  2. NORVIR [Suspect]
     Indication: HIV INFECTION
     Dosage: 200MG PER DAY
     Route: 048
     Dates: start: 20060822
  3. REYATAZ [Suspect]
     Indication: HIV INFECTION
     Dosage: 300MG PER DAY
     Route: 048
     Dates: start: 20060822
  4. PEGASYS [Concomitant]
     Indication: HEPATITIS C
     Route: 058
     Dates: start: 20061010
  5. RIBAVIRIN [Concomitant]
     Indication: HEPATITIS C
     Dosage: 1000MG PER DAY
     Route: 048
     Dates: start: 20061010

REACTIONS (4)
  - BLOOD BILIRUBIN INCREASED [None]
  - CONDITION AGGRAVATED [None]
  - EPISTAXIS [None]
  - HAEMOGLOBIN DECREASED [None]
